FAERS Safety Report 5632190-7 (Version None)
Quarter: 2008Q1

REPORT INFORMATION
  Report Type: 
  Country: None (occurrence: None)
  Receive Date: 20080220
  Receipt Date: 20080205
  Transmission Date: 20080703
  Serious: Yes (Other)
  Sender: FDA-Public Use
  Company Number: GB-AMGEN-UK264755

PATIENT
  Age: 83 Year
  Sex: Female

DRUGS (2)
  1. NEUPOGEN [Suspect]
     Indication: NEUTROPENIA
     Route: 065
  2. UNSPECIFIED ANTINEOPLASTIC AGENT [Concomitant]
     Route: 065

REACTIONS (1)
  - CHONDROCALCINOSIS PYROPHOSPHATE [None]
